FAERS Safety Report 7549254-3 (Version None)
Quarter: 2011Q2

REPORT INFORMATION
  Report Type: 
  Country: None (occurrence: None)
  Receive Date: 20110615
  Receipt Date: 20110615
  Transmission Date: 20111010
  Serious: Yes (Hospitalization)
  Sender: FDA-Public Use
  Company Number: PHHO1999IT01961

PATIENT
  Sex: Male
  Weight: 60.5 kg

DRUGS (4)
  1. METHYLPREDNISOLONE [Suspect]
  2. NEORAL [Suspect]
  3. AZATHIOPRINE [Suspect]
  4. PLACEBO [Suspect]
     Dosage: 20 MG, OT
     Route: 042
     Dates: start: 19980903

REACTIONS (1)
  - ENTEROCOLITIS [None]
